FAERS Safety Report 20109699 (Version 1)
Quarter: 2021Q4

REPORT INFORMATION
  Report Type: Spontaneous
  Country: CN (occurrence: None)
  Receive Date: 20211124
  Receipt Date: 20211124
  Transmission Date: 20220303
  Serious: Yes (Other)
  Sender: FDA-Public Use
  Company Number: 2021A795158

PATIENT
  Age: 59 Year
  Sex: Male
  Weight: 75 kg

DRUGS (5)
  1. IMFINZI [Suspect]
     Active Substance: DURVALUMAB
     Indication: Small cell lung cancer extensive stage
     Dosage: 1500.0MG UNKNOWN
     Route: 041
     Dates: start: 20210918
  2. ETOPOSIDE [Concomitant]
     Active Substance: ETOPOSIDE
     Indication: Small cell lung cancer extensive stage
  3. CARBOPLATIN [Concomitant]
     Active Substance: CARBOPLATIN
     Indication: Small cell lung cancer extensive stage
  4. CISPLATIN [Concomitant]
     Active Substance: CISPLATIN
     Indication: Small cell lung cancer extensive stage
  5. ETOPOSIDE/CARBOPLATIN [Concomitant]
     Indication: Non-small cell lung cancer
     Route: 041

REACTIONS (5)
  - Cardiac failure [Unknown]
  - Troponin T increased [Unknown]
  - General physical condition abnormal [Unknown]
  - Myocardial necrosis marker increased [Recovered/Resolved]
  - Troponin I abnormal [Unknown]
